FAERS Safety Report 9148484 (Version 1)
Quarter: 2013Q1

REPORT INFORMATION
  Report Type: Spontaneous
  Country: US (occurrence: US)
  Receive Date: 20130308
  Receipt Date: 20130308
  Transmission Date: 20140127
  Serious: Yes (Other)
  Sender: FDA-Public Use
  Company Number: US-SANOFI-AVENTIS-2013SA022350

PATIENT
  Age: 70 Year
  Sex: Female

DRUGS (4)
  1. LANTUS SOLOSTAR [Suspect]
     Indication: TYPE 2 DIABETES MELLITUS
     Dosage: DOSE:30 UNIT(S)
     Route: 051
  2. SOLOSTAR [Suspect]
     Indication: TYPE 2 DIABETES MELLITUS
  3. PREDNISONE [Suspect]
  4. PRILOSEC [Suspect]

REACTIONS (8)
  - Renal cancer [Unknown]
  - Cystitis interstitial [Unknown]
  - Abdominal pain upper [Unknown]
  - Hypoglycaemia [Unknown]
  - Gait disturbance [Unknown]
  - Back disorder [Unknown]
  - Blood glucose increased [Unknown]
  - Injection site pain [Unknown]
